FAERS Safety Report 20985030 (Version 1)
Quarter: 2022Q2

REPORT INFORMATION
  Report Type: Spontaneous
  Country: US (occurrence: None)
  Receive Date: 20220621
  Receipt Date: 20220621
  Transmission Date: 20220720
  Serious: No
  Sender: FDA-Public Use
  Company Number: US-ROCHE-2894022

PATIENT
  Sex: Female

DRUGS (2)
  1. XELODA [Suspect]
     Active Substance: CAPECITABINE
     Indication: Product used for unknown indication
     Route: 048
  2. TUKYSA [Suspect]
     Active Substance: TUCATINIB
     Indication: Breast cancer female
     Dosage: 150 MG TABLETS 2 BY MOUTH TWICE A DAY
     Route: 048

REACTIONS (4)
  - Diarrhoea [Unknown]
  - Abdominal pain [Unknown]
  - Diarrhoea [Unknown]
  - Decreased appetite [Unknown]
